FAERS Safety Report 24279160 (Version 7)
Quarter: 2024Q4

REPORT INFORMATION
  Report Type: Spontaneous
  Country: US (occurrence: US)
  Receive Date: 20240903
  Receipt Date: 20241125
  Transmission Date: 20250115
  Serious: No
  Sender: PFIZER
  Company Number: US-PFIZER INC-202400247717

PATIENT
  Age: 48 Year
  Sex: Male

DRUGS (3)
  1. CIBINQO [Suspect]
     Active Substance: ABROCITINIB
     Indication: Dermatitis atopic
     Dosage: 100 MG, 1X/DAY
     Route: 048
  2. CIBINQO [Suspect]
     Active Substance: ABROCITINIB
     Dosage: 200 MG, 1X/DAY
  3. CIBINQO [Suspect]
     Active Substance: ABROCITINIB
     Dosage: 200 MG

REACTIONS (4)
  - Middle insomnia [Unknown]
  - Mental disorder [Unknown]
  - Drug ineffective [Unknown]
  - Product dispensing error [Unknown]
